FAERS Safety Report 5098848-6 (Version None)
Quarter: 2006Q3

REPORT INFORMATION
  Report Type: 
  Country: None (occurrence: None)
  Receive Date: 20060905
  Receipt Date: 20060829
  Transmission Date: 20061208
  Serious: Yes (Hospitalization)
  Sender: FDA-Public Use
  Company Number: S06-USA-03465-01

PATIENT
  Age: 41 Year
  Sex: Female

DRUGS (2)
  1. LEXAPRO [Suspect]
     Indication: POSTPARTUM DEPRESSION
     Dosage: 30 MG QD PO
     Route: 048
     Dates: start: 20030101, end: 20040801
  2. STRATTERA [Suspect]
     Dosage: 100 MG QD
     Dates: start: 20020101

REACTIONS (3)
  - DRUG INTERACTION [None]
  - HYPOMANIA [None]
  - PSYCHOTIC DISORDER [None]
